FAERS Safety Report 5746586-6 (Version None)
Quarter: 2008Q2

REPORT INFORMATION
  Report Type: 
  Country: None (occurrence: None)
  Receive Date: 20080520
  Receipt Date: 20080520
  Transmission Date: 20081010
  Serious: No
  Sender: FDA-Public Use
  Company Number: None

PATIENT
  Sex: Female
  Weight: 90.039 kg

DRUGS (2)
  1. SERTRALINE [Suspect]
     Indication: ANXIETY
     Dosage: 50MG 1 + 1/2 QD PO
     Route: 048
     Dates: start: 20030101
  2. SERTRALINE [Suspect]
     Indication: DEPRESSION
     Dosage: 50MG 1 + 1/2 QD PO
     Route: 048
     Dates: start: 20030101

REACTIONS (1)
  - DRUG INEFFECTIVE [None]
